FAERS Safety Report 25323523 (Version 1)
Quarter: 2025Q2

REPORT INFORMATION
  Report Type: Spontaneous
  Country: US (occurrence: US)
  Receive Date: 20250516
  Receipt Date: 20250516
  Transmission Date: 20250717
  Serious: No
  Sender: NUVO PHARMACEUTICALS
  Company Number: US-Nuvo Pharmaceuticals Inc-2176849

PATIENT

DRUGS (1)
  1. DEXTROAMPHETAMINE SULFATE [Suspect]
     Active Substance: DEXTROAMPHETAMINE SULFATE
     Indication: Product used for unknown indication

REACTIONS (13)
  - Brain fog [Unknown]
  - Product substitution issue [Unknown]
  - Drug ineffective [Unknown]
  - Disturbance in attention [Unknown]
  - Palpitations [Unknown]
  - Irritability [Unknown]
  - Discomfort [Unknown]
  - Asthenia [Unknown]
  - Executive dysfunction [Unknown]
  - Pain in jaw [Unknown]
  - Anxiety [Unknown]
  - Depression [Unknown]
  - Somnolence [Unknown]
